FAERS Safety Report 8215021-0 (Version None)
Quarter: 2012Q1

REPORT INFORMATION
  Report Type: 
  Country: None (occurrence: None)
  Receive Date: 20120316
  Receipt Date: 20120306
  Transmission Date: 20120608
  Serious: Yes (Hospitalization, Other)
  Sender: FDA-Public Use
  Company Number: FR-PFIZER INC-2012066962

PATIENT
  Age: 87 Year
  Sex: Male

DRUGS (7)
  1. NEXIUM [Suspect]
     Dosage: 20 MG DAILY
     Route: 048
  2. RAMIPRIL [Suspect]
     Dosage: 5 MG DAILY
     Route: 048
  3. FUROSEMIDE [Suspect]
     Dosage: 20 MG DAILY
     Route: 048
     Dates: end: 20120221
  4. NEORECORMON [Suspect]
     Dosage: 3000 IU PER WEEK
     Route: 058
  5. ASPIRIN [Suspect]
     Dosage: 75 MG DAILY
     Route: 048
  6. FOLIC ACID [Suspect]
     Indication: PRODUCT USED FOR UNKNOWN INDICATION
     Dosage: 15 MG DAILY
     Route: 048
  7. ANAGRELIDE HYDROCHLORIDE [Suspect]
     Dosage: 1 MG DAILY
     Route: 048
     Dates: start: 20080101

REACTIONS (3)
  - RENAL FAILURE [None]
  - ATRIAL FIBRILLATION [None]
  - ARRHYTHMIA [None]
